FAERS Safety Report 6358005-X (Version None)
Quarter: 2009Q3

REPORT INFORMATION
  Report Type: 
  Country: None (occurrence: None)
  Receive Date: 20090911
  Receipt Date: 20090902
  Transmission Date: 20100115
  Serious: Yes (Other)
  Sender: FDA-Public Use
  Company Number: GXKR2009GB09844

PATIENT
  Age: 59 Year
  Sex: Female

DRUGS (5)
  1. DOXYCYCLINE [Suspect]
     Indication: OSTEOMYELITIS
     Dosage: 100 MG, BID, ORAL
     Route: 048
     Dates: start: 20090211, end: 20090212
  2. DOXYCYCLINE [Suspect]
     Indication: WOUND INFECTION
     Dosage: 100 MG, BID, ORAL
     Route: 048
     Dates: start: 20090211, end: 20090212
  3. METFORMIN HCL [Concomitant]
  4. QUININE BUSULPHATE (QUININE BISULFATE) [Concomitant]
  5. SIMVASTATIN [Concomitant]

REACTIONS (1)
  - LIVER FUNCTION TEST ABNORMAL [None]
